FAERS Safety Report 12408366 (Version 1)
Quarter: 2016Q2

REPORT INFORMATION
  Report Type: Spontaneous
  Country: US (occurrence: US)
  Receive Date: 20160526
  Receipt Date: 20160526
  Transmission Date: 20160815
  Serious: Yes (Other)
  Sender: FDA-Public Use
  Company Number: US-MDT-ADR-2016-00950

PATIENT
  Age: 48 Year
  Sex: Female

DRUGS (4)
  1. DILAUDID [Suspect]
     Active Substance: HYDROMORPHONE HYDROCHLORIDE
     Dosage: .48MG/DAY
     Route: 037
  2. MORPHINE DRUG, UNKNOWN [Suspect]
     Active Substance: MORPHINE
     Dosage: .4 MG/DAY
     Route: 037
  3. UNSPECIFIED MEDICATIONS [Suspect]
     Active Substance: UNSPECIFIED INGREDIENT
     Route: 048
  4. BACLOFEN. [Suspect]
     Active Substance: BACLOFEN
     Dosage: .48MG/DAY
     Route: 037

REACTIONS (8)
  - Drug withdrawal syndrome [Unknown]
  - Arthralgia [Unknown]
  - Fall [Unknown]
  - Swelling [Unknown]
  - Joint instability [Unknown]
  - Overdose [Unknown]
  - Pain [Unknown]
  - Elephantiasis [Recovered/Resolved]

NARRATIVE: CASE EVENT DATE: 20140930
